FAERS Safety Report 18934910 (Version 1)
Quarter: 2021Q1

REPORT INFORMATION
  Report Type: Spontaneous
  Country: PL (occurrence: PL)
  Receive Date: 20210224
  Receipt Date: 20210224
  Transmission Date: 20210420
  Serious: Yes (Other)
  Sender: FDA-Public Use
  Company Number: PL-LUPIN PHARMACEUTICALS INC.-2021-02182

PATIENT
  Age: 64 Year
  Sex: Female

DRUGS (9)
  1. SALINE [SODIUM CHLORIDE] [Concomitant]
     Active Substance: SODIUM CHLORIDE
     Indication: FAECALOMA
     Dosage: DOSE: 70 UNIT DILUTED IN 2ML OF SALINE INTO THE EXTERNAL ANAL SPHINCTER EITHER VIA THE INTRA?ANAL OR
     Route: 065
     Dates: start: 201901
  2. SALINE [SODIUM CHLORIDE] [Concomitant]
     Active Substance: SODIUM CHLORIDE
     Indication: CONSTIPATION
  3. METOCLOPRAMIDE. [Suspect]
     Active Substance: METOCLOPRAMIDE
     Indication: ANAL SPASM
  4. BOTULINUM TOXIN TYPE A [Concomitant]
     Active Substance: BOTULINUM TOXIN TYPE A
     Indication: FAECALOMA
     Dosage: DOSE: 70 UNIT DILUTED IN 2ML OF SALINE INTO THE EXTERNAL ANAL SPHINCTER EITHER VIA THE INTRA?ANAL OR
     Route: 065
     Dates: start: 201901
  5. BOTULINUM TOXIN TYPE A [Concomitant]
     Active Substance: BOTULINUM TOXIN TYPE A
     Indication: CONSTIPATION
     Dosage: DOSE: 50 UNIT DILUTED INTO THE EXTERNAL ANAL SPHINCTER EITHER VIA THE INTRA?ANAL OR PERIANAL REGION
     Route: 065
     Dates: start: 201904
  6. BOTULINUM TOXIN TYPE A [Concomitant]
     Active Substance: BOTULINUM TOXIN TYPE A
     Indication: ANAL SPASM
  7. METOCLOPRAMIDE. [Suspect]
     Active Substance: METOCLOPRAMIDE
     Indication: FAECALOMA
     Dosage: UNK
     Route: 065
  8. METOCLOPRAMIDE. [Suspect]
     Active Substance: METOCLOPRAMIDE
     Indication: CONSTIPATION
  9. SALINE [SODIUM CHLORIDE] [Concomitant]
     Active Substance: SODIUM CHLORIDE
     Indication: ANAL SPASM

REACTIONS (1)
  - Drug ineffective [Unknown]
